FAERS Safety Report 17956503 (Version 1)
Quarter: 2020Q2

REPORT INFORMATION
  Report Type: Spontaneous
  Country: US (occurrence: US)
  Receive Date: 20200627
  Receipt Date: 20200627
  Transmission Date: 20200714
  Serious: Yes (Disabling)
  Sender: FDA-Public Use
  Company Number: None

PATIENT
  Age: 63 Year
  Sex: Female

DRUGS (5)
  1. LEVOFLOXACIN. [Suspect]
     Active Substance: LEVOFLOXACIN
     Indication: ESCHERICHIA SEPSIS
     Dosage: ?          QUANTITY:1 TABLET(S);?
     Route: 048
     Dates: start: 20200324, end: 20200404
  2. ALEVE 440MG [Concomitant]
  3. VIT B12 2500MG [Concomitant]
  4. METFORMIN 500MG [Concomitant]
     Active Substance: METFORMIN HYDROCHLORIDE
  5. LEVOTHYROXIN 175MCG [Concomitant]

REACTIONS (7)
  - Headache [None]
  - Oedema peripheral [None]
  - Musculoskeletal pain [None]
  - Diabetes mellitus inadequate control [None]
  - Diarrhoea [None]
  - Neuropathy peripheral [None]
  - Mouth ulceration [None]

NARRATIVE: CASE EVENT DATE: 20200324
